FAERS Safety Report 9478519 (Version 2)
Quarter: 2013Q4

REPORT INFORMATION
  Report Type: Report from Study
  Country: US (occurrence: US)
  Receive Date: 20130827
  Receipt Date: 20131003
  Transmission Date: 20140711
  Serious: Yes (Death)
  Sender: FDA-Public Use
  Company Number: US-ROCHE-1265137

PATIENT
  Age: 34 Year
  Sex: Female

DRUGS (3)
  1. PULMOZYME [Suspect]
     Indication: CYSTIC FIBROSIS
     Route: 055
     Dates: start: 201107, end: 20130814
  2. HYPERSAL [Concomitant]
     Route: 065
     Dates: start: 201211, end: 20130814
  3. SALBUTAMOL [Concomitant]
     Route: 065
     Dates: end: 20130814

REACTIONS (1)
  - Respiratory failure [Fatal]
